FAERS Safety Report 12296762 (Version 1)
Quarter: 2016Q2

REPORT INFORMATION
  Report Type: Spontaneous
  Country: CA (occurrence: CA)
  Receive Date: 20160422
  Receipt Date: 20160422
  Transmission Date: 20160815
  Serious: Yes (Hospitalization)
  Sender: FDA-Public Use
  Company Number: PHHY2016CA052188

PATIENT
  Age: 14 Year
  Sex: Male

DRUGS (1)
  1. DEFERASIROX [Suspect]
     Active Substance: DEFERASIROX
     Indication: CHELATION THERAPY
     Dosage: 36 MG/KG, QD
     Route: 065

REACTIONS (10)
  - Dehydration [Unknown]
  - Hypophosphataemia [Recovered/Resolved]
  - Metabolic acidosis [Recovered/Resolved]
  - Vomiting [Unknown]
  - Fanconi syndrome acquired [Recovering/Resolving]
  - Abdominal pain [Unknown]
  - Hypokalaemia [Recovered/Resolved]
  - Hyperphosphaturia [Recovered/Resolved]
  - Proteinuria [Recovered/Resolved]
  - Glycosuria [Recovered/Resolved]
